FAERS Safety Report 9284755 (Version 1)
Quarter: 2013Q2

REPORT INFORMATION
  Report Type: Spontaneous
  Country: MY (occurrence: MY)
  Receive Date: 20130513
  Receipt Date: 20130513
  Transmission Date: 20140414
  Serious: Yes (Other)
  Sender: FDA-Public Use
  Company Number: MY-RANBAXY-2013R3-68638

PATIENT
  Age: 75 Year
  Sex: Female

DRUGS (1)
  1. RIOMET [Suspect]
     Indication: DIABETES MELLITUS
     Dosage: 1 GM, DAILY
     Route: 048

REACTIONS (3)
  - Myalgia [Not Recovered/Not Resolved]
  - Chest pain [Not Recovered/Not Resolved]
  - Dyspnoea [Not Recovered/Not Resolved]
